FAERS Safety Report 6151878-5 (Version None)
Quarter: 2009Q2

REPORT INFORMATION
  Report Type: 
  Country: None (occurrence: None)
  Receive Date: 20090410
  Receipt Date: 20090403
  Transmission Date: 20091009
  Serious: Yes (Hospitalization, Other)
  Sender: FDA-Public Use
  Company Number: US-ELI_LILLY_AND_COMPANY-US200904000758

PATIENT
  Sex: Female

DRUGS (9)
  1. HUMALOG [Suspect]
     Dosage: 1 U, UNK
     Dates: start: 20080919
  2. HUMALOG [Suspect]
     Dosage: 2 U, UNK
     Dates: start: 20080919
  3. URSO FORTE [Concomitant]
  4. PREVACID [Concomitant]
  5. TERFIUM [Concomitant]
  6. FLUOXETINE [Concomitant]
  7. NOVOLOG [Concomitant]
     Dates: start: 20080101
  8. NOVOLOG MIX 70/30 [Concomitant]
     Dates: start: 20080101
  9. LANTUS [Concomitant]
     Dates: start: 20080101

REACTIONS (12)
  - ABNORMAL FAECES [None]
  - ANXIETY [None]
  - ASTHENIA [None]
  - BLOOD GLUCOSE INCREASED [None]
  - CHEST DISCOMFORT [None]
  - EATING DISORDER [None]
  - HYPERHIDROSIS [None]
  - HYPERTENSION [None]
  - MYOCARDIAL INFARCTION [None]
  - PALPITATIONS [None]
  - URINE ODOUR ABNORMAL [None]
  - WEIGHT DECREASED [None]
